FAERS Safety Report 8247090-6 (Version None)
Quarter: 2012Q1

REPORT INFORMATION
  Report Type: 
  Country: None (occurrence: None)
  Receive Date: 20120330
  Receipt Date: 20120319
  Transmission Date: 20120608
  Serious: Yes (Other)
  Sender: FDA-Public Use
  Company Number: IT-ROCHE-1050442

PATIENT
  Sex: Female

DRUGS (3)
  1. THYMOSIN ALPHA-1 [Suspect]
     Indication: HEPATITIS C
     Route: 058
  2. PEGINTERFERON ALFA-2A [Suspect]
     Indication: HEPATITIS C
  3. COPEGUS [Suspect]
     Indication: HEPATITIS C
     Dosage: DAILY DOSE: 800-1200 MG

REACTIONS (2)
  - ABORTION SPONTANEOUS [None]
  - PREGNANCY [None]
